FAERS Safety Report 4573593-1 (Version None)
Quarter: 2005Q1

REPORT INFORMATION
  Report Type: 
  Country: None (occurrence: None)
  Receive Date: 20050208
  Receipt Date: 20040922
  Transmission Date: 20050727
  Serious: No
  Sender: FDA-Public Use
  Company Number: US-GLAXOSMITHKLINE-A0526860A

PATIENT
  Age: 48 Year
  Sex: Female

DRUGS (3)
  1. PAXIL [Suspect]
     Dosage: 20MG PER DAY
     Route: 048
     Dates: start: 20000101
  2. PHENTERMINE [Concomitant]
     Dates: end: 20040917
  3. CONTAC [Concomitant]
     Dates: start: 20040920

REACTIONS (1)
  - ANXIETY [None]
